FAERS Safety Report 5718413-4 (Version None)
Quarter: 2008Q2

REPORT INFORMATION
  Report Type: 
  Country: None (occurrence: None)
  Receive Date: 20080425
  Receipt Date: 20080418
  Transmission Date: 20081010
  Serious: Yes (Hospitalization)
  Sender: FDA-Public Use
  Company Number: PHBS2008DE04217

PATIENT
  Age: 37 Year
  Sex: Male

DRUGS (2)
  1. METOPROLOL TARTRATE [Suspect]
     Indication: MYOCARDITIS
     Dosage: 95 MG/DAY
  2. AMIODARONE HCL [Suspect]
     Indication: VENTRICULAR ARRHYTHMIA
     Dosage: 200 MG/DAY

REACTIONS (30)
  - ANEURYSM [None]
  - ARRHYTHMIA [None]
  - ATRIOVENTRICULAR BLOCK FIRST DEGREE [None]
  - BUNDLE BRANCH BLOCK LEFT [None]
  - BUNDLE BRANCH BLOCK RIGHT [None]
  - CARDIAC SARCOIDOSIS [None]
  - CARDIOMEGALY [None]
  - CARDIOMYOPATHY [None]
  - CATHETERISATION CARDIAC [None]
  - DILATATION VENTRICULAR [None]
  - DIZZINESS [None]
  - DYSPNOEA [None]
  - ECHOCARDIOGRAM ABNORMAL [None]
  - EJECTION FRACTION [None]
  - EJECTION FRACTION DECREASED [None]
  - ELECTROCARDIOGRAM ABNORMAL [None]
  - ELECTROCARDIOGRAM AMBULATORY [None]
  - ELECTROCARDIOGRAM T WAVE INVERSION [None]
  - EXERCISE TEST [None]
  - EXTRASYSTOLES [None]
  - HEART TRANSPLANT [None]
  - HYPERTHYROIDISM [None]
  - IMPLANTABLE DEFIBRILLATOR INSERTION [None]
  - LEFT VENTRICULAR DYSFUNCTION [None]
  - NUCLEAR MAGNETIC RESONANCE IMAGING ABNORMAL [None]
  - PALPITATIONS [None]
  - RIGHT VENTRICULAR DYSFUNCTION [None]
  - SYNCOPE [None]
  - THYROIDECTOMY [None]
  - VENTRICULAR TACHYCARDIA [None]
